FAERS Safety Report 9616064 (Version 3)
Quarter: 2014Q1

REPORT INFORMATION
  Report Type: Spontaneous
  Country: JP (occurrence: JP)
  Receive Date: 20131011
  Receipt Date: 20140211
  Transmission Date: 20141002
  Serious: Yes (Hospitalization)
  Sender: FDA-Public Use
  Company Number: JP-PFIZER INC-2013288116

PATIENT
  Age: 84 Year
  Sex: Male
  Weight: 53.5 kg

DRUGS (14)
  1. AZULFIDINE EN [Suspect]
     Indication: RHEUMATOID ARTHRITIS
     Dosage: 250 MG, 2X/DAY
     Route: 048
     Dates: start: 20130927
  2. NU LOTAN [Suspect]
     Indication: HYPERTENSION
     Dosage: 25 MG, 1X/DAY
     Route: 048
     Dates: end: 20131005
  3. SOLANAX [Concomitant]
     Dosage: 0.4 MG, 1X/DAY
     Route: 048
     Dates: end: 20131005
  4. MIYA BM [Concomitant]
     Dosage: 2 DF, 3X/DAY
     Route: 048
     Dates: end: 20131005
  5. MUCODYNE [Concomitant]
     Indication: CHRONIC OBSTRUCTIVE PULMONARY DISEASE
     Dosage: 250 MG, 3X/DAY
     Route: 048
  6. FLIVAS OD [Concomitant]
     Indication: BENIGN PROSTATIC HYPERPLASIA
     Dosage: 75 MG, 1X/DAY
     Route: 048
  7. ZYLORIC [Concomitant]
     Indication: HYPERURICAEMIA
     Dosage: 100 MG, 1X/DAY
     Route: 048
  8. MAGMITT [Concomitant]
     Indication: CONSTIPATION
     Dosage: 330 MG, 3X/DAY
     Route: 048
  9. FERROMIA [Concomitant]
     Indication: ANAEMIA
     Dosage: 50 MG, 2X/DAY
     Route: 048
     Dates: end: 20131005
  10. VESICAREOD [Concomitant]
     Indication: BENIGN PROSTATIC HYPERPLASIA
     Dosage: 5 MG, 1X/DAY
     Route: 048
  11. TALION [Concomitant]
     Indication: RHINITIS ALLERGIC
     Dosage: 5 MG, 2X/DAY
     Route: 048
  12. UNSEIIN [Concomitant]
     Dosage: 2.5 G, 2X/DAY
     Route: 048
  13. GOSHAJINKIGAN [Concomitant]
     Dosage: 2.5 G, 2X/DAY
     Route: 048
  14. NINJIN-YOEI-TO [Concomitant]
     Dosage: 3 G, 2X/DAY
     Route: 048

REACTIONS (2)
  - Hyperkalaemia [Recovering/Resolving]
  - Hyponatraemia [Recovering/Resolving]
